FAERS Safety Report 18190009 (Version 3)
Quarter: 2020Q3

REPORT INFORMATION
  Report Type: Spontaneous
  Country: US (occurrence: US)
  Receive Date: 20200825
  Receipt Date: 20200917
  Transmission Date: 20201103
  Serious: No
  Sender: FDA-Public Use
  Company Number: US-SA-2020SA221260

PATIENT

DRUGS (1)
  1. LANTUS SOLOSTAR [Suspect]
     Active Substance: INSULIN GLARGINE
     Indication: TYPE 2 DIABETES MELLITUS
     Dosage: 30 IU, QD, EVERY EVENING
     Route: 065

REACTIONS (8)
  - Device operational issue [Unknown]
  - Injection site extravasation [Unknown]
  - Glycosylated haemoglobin increased [Unknown]
  - Wrong technique in device usage process [Unknown]
  - Blood glucose increased [Unknown]
  - Device issue [Unknown]
  - Cataract operation [Unknown]
  - Injection site indentation [Unknown]

NARRATIVE: CASE EVENT DATE: 20200811
